FAERS Safety Report 10196077 (Version 1)
Quarter: 2014Q2

REPORT INFORMATION
  Report Type: Spontaneous
  Country: CH (occurrence: None)
  Receive Date: 20140522
  Receipt Date: 20140522
  Transmission Date: 20141212
  Serious: Yes (Hospitalization)
  Sender: FDA-Public Use
  Company Number: CH-2014-1758

PATIENT
  Age: 55 Year
  Sex: Female

DRUGS (9)
  1. NAVELBINE [Suspect]
     Indication: INVASIVE DUCTAL BREAST CARCINOMA
     Dosage: DAY 1 AND 8 EVERY 21 DAYS
     Route: 042
     Dates: start: 201401
  2. TENORMIN [Suspect]
     Indication: INVASIVE DUCTAL BREAST CARCINOMA
     Route: 048
     Dates: end: 20140401
  3. NORVASC [Suspect]
     Indication: INVASIVE DUCTAL BREAST CARCINOMA
     Route: 048
     Dates: end: 20140401
  4. METFIN [Concomitant]
  5. DIAMICRON [Concomitant]
  6. SIMVASTATINE [Concomitant]
  7. SERETIDE DISCUS [Concomitant]
  8. HERCEPTIN [Concomitant]
  9. PERJETA (PERTUZUMAB) [Concomitant]

REACTIONS (5)
  - Paraesthesia [None]
  - Presyncope [None]
  - Dizziness [None]
  - Blood pressure systolic increased [None]
  - Blood pressure orthostatic [None]
